FAERS Safety Report 5527948-9 (Version None)
Quarter: 2007Q4

REPORT INFORMATION
  Report Type: 
  Country: None (occurrence: None)
  Receive Date: 20071128
  Receipt Date: 20071116
  Transmission Date: 20080405
  Serious: Yes (Other)
  Sender: FDA-Public Use
  Company Number: JP-ROCHE-516593

PATIENT
  Age: 77 Year
  Sex: Male
  Weight: 61 kg

DRUGS (9)
  1. PEGASYS [Suspect]
     Route: 058
     Dates: start: 20050915, end: 20051124
  2. PEGASYS [Suspect]
     Route: 058
     Dates: start: 20060703, end: 20070723
  3. NORVASC [Concomitant]
     Route: 048
     Dates: end: 20070709
  4. PROTECADIN [Concomitant]
     Route: 048
  5. DOXAZOSIN MESYLATE [Concomitant]
     Route: 048
  6. ULCERLMIN [Concomitant]
     Dosage: FORM: FINE GRANULES
     Route: 048
  7. MARZULENE-S [Concomitant]
     Route: 048
  8. MAGNESIUM OXIDE [Concomitant]
     Route: 048
  9. NU-LOTAN [Concomitant]
     Route: 048
     Dates: start: 20070723

REACTIONS (7)
  - DRY EYE [None]
  - FACIAL PALSY [None]
  - INTERSTITIAL LUNG DISEASE [None]
  - LAGOPHTHALMOS [None]
  - POLYMYALGIA RHEUMATICA [None]
  - VIRAL INFECTION [None]
  - WHITE BLOOD CELL COUNT DECREASED [None]
